FAERS Safety Report 23494789 (Version 1)
Quarter: 2024Q1

REPORT INFORMATION
  Report Type: Spontaneous
  Country: US (occurrence: US)
  Receive Date: 20240207
  Receipt Date: 20240207
  Transmission Date: 20240410
  Serious: Yes (Other)
  Sender: FDA-Public Use
  Company Number: US-OTSUKA-2024_002901

PATIENT
  Age: 49 Year
  Sex: Female

DRUGS (2)
  1. NUEDEXTA [Suspect]
     Active Substance: DEXTROMETHORPHAN HYDROBROMIDE\QUINIDINE SULFATE
     Indication: Product used for unknown indication
     Dosage: UNK
     Route: 065
  2. AUBAGIO [Suspect]
     Active Substance: TERIFLUNOMIDE
     Indication: Product used for unknown indication
     Dosage: UNK
     Route: 065

REACTIONS (12)
  - Shoulder fracture [Unknown]
  - Eyelid margin crusting [Unknown]
  - Rhinorrhoea [Unknown]
  - Back pain [Unknown]
  - Crying [Unknown]
  - Bowel movement irregularity [Unknown]
  - Arthralgia [Unknown]
  - Somnolence [Unknown]
  - Chills [Unknown]
  - Heart rate increased [Unknown]
  - Vision blurred [Unknown]
  - Cough [Unknown]

NARRATIVE: CASE EVENT DATE: 20221204
